FAERS Safety Report 7879380 (Version 4)
Quarter: 2013Q4

REPORT INFORMATION
  Report Type: Spontaneous
  Country: US (occurrence: US)
  Receive Date: 20110331
  Receipt Date: 20131118
  Transmission Date: 20140711
  Serious: Yes (Hospitalization)
  Sender: FDA-Public Use
  Company Number: US-BAYER-201029484NA

PATIENT
  Age: 26 Year
  Sex: Female
  Weight: 92.06 kg

DRUGS (14)
  1. YASMIN [Suspect]
     Indication: ORAL CONTRACEPTION
     Dosage: UNK
     Dates: start: 2005, end: 2010
  2. YASMIN [Suspect]
     Indication: PREMENSTRUAL SYNDROME
  3. OCELLA [Suspect]
     Indication: PREMENSTRUAL SYNDROME
     Dosage: UNK
     Dates: start: 2005, end: 2010
  4. OCELLA [Suspect]
     Indication: ORAL CONTRACEPTION
  5. YAZ [Suspect]
     Dosage: UNK
     Dates: start: 2005, end: 2010
  6. NORTRIPTYLINE [Concomitant]
     Indication: TENSION HEADACHE
  7. ALBUTEROL [Concomitant]
  8. MIDRIN [Concomitant]
  9. FLOVENT [Concomitant]
  10. AMOXICILLIN [Concomitant]
     Dosage: 500 MG, UNK
  11. LORATADINE [Concomitant]
     Dosage: 10 MG, DAILY
  12. MIGQUIN [Concomitant]
     Dosage: UNK
  13. HYDROXYZINE PAMOATE [Concomitant]
     Dosage: 50 MG THREE TIMES DAILY
  14. ADVIL [Concomitant]
     Dosage: UNK UNK, AS NEEDED

REACTIONS (4)
  - Cholecystitis chronic [None]
  - Gallbladder disorder [None]
  - Injury [None]
  - Biliary dyskinesia [None]
